FAERS Safety Report 6798065-5 (Version None)
Quarter: 2010Q2

REPORT INFORMATION
  Report Type: 
  Country: None (occurrence: None)
  Receive Date: 20100623
  Receipt Date: 20100617
  Transmission Date: 20101027
  Serious: Yes (Death)
  Sender: FDA-Public Use
  Company Number: 2010US002275

PATIENT
  Age: 67 Year
  Sex: Male

DRUGS (3)
  1. PROGRAF [Suspect]
     Indication: RENAL TRANSPLANT
     Dosage: UNK, ORAL
     Route: 048
  2. CARDIOVASCULAR SYSTEM DRUGS FORMULATION UNKNOWN [Concomitant]
  3. MYFORTIC (MYCOPHENOLATE SODIUM) FORMULATION UNKNOWN [Concomitant]

REACTIONS (1)
  - CARDIOVASCULAR DISORDER [None]
